FAERS Safety Report 7683090-2 (Version None)
Quarter: 2011Q3

REPORT INFORMATION
  Report Type: 
  Country: None (occurrence: None)
  Receive Date: 20110815
  Receipt Date: 20110802
  Transmission Date: 20111222
  Serious: Yes (Hospitalization)
  Sender: FDA-Public Use
  Company Number: FR-ELI_LILLY_AND_COMPANY-FR201108001085

PATIENT
  Sex: Female

DRUGS (4)
  1. CYMBALTA [Suspect]
     Dosage: 30 MG, QD
     Route: 048
     Dates: start: 20110101
  2. CYMBALTA [Suspect]
     Dosage: 1/2 30MG CAPSULE, QD
     Route: 048
     Dates: end: 20110501
  3. CYMBALTA [Suspect]
     Dosage: 60 MG, QD
     Route: 048
     Dates: start: 20090101, end: 20110101
  4. CYMBALTA [Suspect]
     Dosage: 30 MG, QOD
     Route: 048

REACTIONS (4)
  - MEDICATION ERROR [None]
  - FEELING ABNORMAL [None]
  - INSOMNIA [None]
  - HOSPITALISATION [None]
